FAERS Safety Report 10170945 (Version 1)
Quarter: 2014Q2

REPORT INFORMATION
  Report Type: Spontaneous
  Country: US (occurrence: None)
  Receive Date: 20140513
  Receipt Date: 20140513
  Transmission Date: 20141212
  Serious: Yes (Hospitalization)
  Sender: FDA-Public Use
  Company Number: None

PATIENT
  Age: 50 Year
  Sex: Male

DRUGS (6)
  1. OXYCODONE-ACETAMINOPHEN [Suspect]
     Indication: SUICIDE ATTEMPT
     Dosage: OVERDOSE
     Route: 048
     Dates: start: 20130128, end: 20130128
  2. WELLBUTRIN [Concomitant]
  3. PERCOCET [Concomitant]
  4. DULOXETINE [Concomitant]
  5. BENZTROPINE [Concomitant]
  6. RISPERIDONE [Concomitant]

REACTIONS (5)
  - Mental status changes [None]
  - Therapeutic response decreased [None]
  - Depressed level of consciousness [None]
  - Suicide attempt [None]
  - Exposure via ingestion [None]
